FAERS Safety Report 17807685 (Version 1)
Quarter: 2020Q2

REPORT INFORMATION
  Report Type: Spontaneous
  Country: US (occurrence: US)
  Receive Date: 20200520
  Receipt Date: 20200520
  Transmission Date: 20200714
  Serious: Yes (Other)
  Sender: FDA-Public Use
  Company Number: None

PATIENT
  Age: 16 Year
  Sex: Female
  Weight: 67.5 kg

DRUGS (1)
  1. MEPIVACAINE [Suspect]
     Active Substance: MEPIVACAINE HYDROCHLORIDE
     Indication: DENTAL LOCAL ANAESTHESIA
     Dosage: ?          OTHER ROUTE:INJECTION IN MOUTH FOR DENTAL PROCEDURE?
     Dates: start: 20200519, end: 20200519

REACTIONS (5)
  - Dizziness [None]
  - Nausea [None]
  - Headache [None]
  - Abdominal discomfort [None]
  - Somnolence [None]

NARRATIVE: CASE EVENT DATE: 20200519
